FAERS Safety Report 7601952-9 (Version None)
Quarter: 2011Q3

REPORT INFORMATION
  Report Type: 
  Country: None (occurrence: None)
  Receive Date: 20110711
  Receipt Date: 20110628
  Transmission Date: 20111222
  Serious: Yes (Other)
  Sender: FDA-Public Use
  Company Number: JP-PFIZER INC-2011093942

PATIENT
  Age: 63 Year
  Sex: Female

DRUGS (8)
  1. ADALAT CC [Concomitant]
     Dosage: UNK
     Dates: start: 20100310
  2. GRANDAXIN [Concomitant]
     Dosage: UNK
     Dates: start: 20060313
  3. RIZE [Concomitant]
     Dosage: UNK
     Dates: start: 20100313
  4. LANSOPRAZOLE [Concomitant]
     Dosage: UNK
     Dates: start: 20100922
  5. LIPITOR [Suspect]
     Indication: HYPERLIPIDAEMIA
     Dosage: 10 MG, 1X/DAY
     Route: 048
     Dates: start: 20100310
  6. AMOXAPINE [Suspect]
     Indication: LUNG NEOPLASM MALIGNANT
     Dosage: 20 MG, 3X/DAY
     Route: 048
     Dates: start: 20100922
  7. ASPIRIN [Concomitant]
     Dosage: UNK
     Dates: start: 20031114
  8. SEPAZON [Concomitant]
     Dosage: UNK
     Dates: start: 20100922

REACTIONS (10)
  - ASPARTATE AMINOTRANSFERASE INCREASED [None]
  - GAIT DISTURBANCE [None]
  - BRADYKINESIA [None]
  - PARALYSIS FLACCID [None]
  - BLOOD URIC ACID INCREASED [None]
  - BLOOD UREA INCREASED [None]
  - RHABDOMYOLYSIS [None]
  - FALL [None]
  - BLOOD LACTATE DEHYDROGENASE INCREASED [None]
  - ALANINE AMINOTRANSFERASE INCREASED [None]
